FAERS Safety Report 9704391 (Version 2)
Quarter: 2013Q4

REPORT INFORMATION
  Report Type: Spontaneous
  Country: US (occurrence: US)
  Receive Date: 20131122
  Receipt Date: 20131122
  Transmission Date: 20140711
  Serious: Yes (Hospitalization)
  Sender: FDA-Public Use
  Company Number: US-MYLANLABS-2012S1024388

PATIENT
  Age: 62 Year
  Sex: Female

DRUGS (6)
  1. CLONAZEPAM [Suspect]
     Indication: DEPRESSION
     Dates: end: 20121101
  2. CLONAZEPAM [Suspect]
     Indication: OFF LABEL USE
     Dates: end: 20121101
  3. DIOVAN [Concomitant]
     Indication: BLOOD PRESSURE INCREASED
  4. CHOLESTEROL MEDICATION [Concomitant]
     Indication: BLOOD CHOLESTEROL INCREASED
  5. TRAZODONE [Concomitant]
     Indication: DEPRESSION
  6. ATIVAN [Concomitant]
     Indication: ANXIETY

REACTIONS (4)
  - Suicide attempt [Recovered/Resolved]
  - Drug ineffective for unapproved indication [Recovered/Resolved]
  - Depression [Recovered/Resolved]
  - Intentional overdose [Recovered/Resolved]
